FAERS Safety Report 6667830-7 (Version None)
Quarter: 2010Q2

REPORT INFORMATION
  Report Type: 
  Country: None (occurrence: None)
  Receive Date: 20100405
  Receipt Date: 20100324
  Transmission Date: 20101027
  Serious: Yes (Other)
  Sender: FDA-Public Use
  Company Number: GB-PFIZER INC-2010037608

PATIENT
  Age: 58 Year
  Sex: Male

DRUGS (7)
  1. CHAMPIX [Suspect]
     Indication: SMOKING CESSATION THERAPY
     Dosage: 0.5 MG, 1X/DAY
  2. CHAMPIX [Suspect]
     Dosage: 0.5 MG, 2X/DAY
     Dates: end: 20100317
  3. AMLODIPINE [Concomitant]
  4. DIAZEPAM [Concomitant]
  5. IRON [Concomitant]
  6. BENDROFLUMETHIAZIDE [Concomitant]
  7. LISINOPRIL [Concomitant]

REACTIONS (7)
  - ABDOMINAL DISTENSION [None]
  - ABNORMAL BEHAVIOUR [None]
  - ALCOHOL ABUSE [None]
  - FEAR [None]
  - NIGHTMARE [None]
  - TREMOR [None]
  - VOMITING [None]
